FAERS Safety Report 9445101 (Version 1)
Quarter: 2013Q3

REPORT INFORMATION
  Report Type: Spontaneous
  Country: MW (occurrence: MW)
  Receive Date: 20130807
  Receipt Date: 20130807
  Transmission Date: 20140515
  Serious: Yes (Hospitalization, Disabling, Other)
  Sender: FDA-Public Use
  Company Number: MW-B.I. PHARMACEUTICALS,INC./RIDGEFIELD-2013-BI-23588GD

PATIENT
  Age: 25 Year
  Sex: Male

DRUGS (4)
  1. VIRAMUNE [Suspect]
     Indication: HIV INFECTION
  2. COTRIMOXAZOLE [Suspect]
     Indication: PROPHYLAXIS
     Dates: start: 201208
  3. STAVUDINE [Concomitant]
     Indication: HIV INFECTION
  4. LAMIVUDINE [Concomitant]
     Indication: HIV INFECTION

REACTIONS (12)
  - Blindness [Unknown]
  - Eye disorder [Unknown]
  - Toxic epidermal necrolysis [Unknown]
  - Stevens-Johnson syndrome [Unknown]
  - Blepharitis [Unknown]
  - Symblepharon [Unknown]
  - Sensation of foreign body [Unknown]
  - Conjunctival oedema [Unknown]
  - Conjunctivitis [Unknown]
  - Corneal disorder [Unknown]
  - Eye inflammation [Unknown]
  - Corneal thinning [Unknown]
